FAERS Safety Report 10586981 (Version 3)
Quarter: 2015Q1

REPORT INFORMATION
  Report Type: Spontaneous
  Country: DE (occurrence: DE)
  Receive Date: 20141117
  Receipt Date: 20150204
  Transmission Date: 20150720
  Serious: Yes (Other)
  Sender: FDA-Public Use
  Company Number: DE-RANBAXY-2014RR-87656

PATIENT
  Age: 49 Year
  Sex: Male
  Weight: 88 kg

DRUGS (5)
  1. PANTOPRAZOLE [Concomitant]
     Active Substance: PANTOPRAZOLE SODIUM
     Indication: PROPHYLAXIS
     Dosage: UNK
     Route: 065
  2. SINUPRET [Concomitant]
     Active Substance: HERBALS
     Indication: BRONCHITIS
     Dosage: TEMPORARILY
     Route: 065
  3. ACC [Concomitant]
     Active Substance: ACETYLCYSTEINE
     Indication: BRONCHITIS
     Dosage: TEMPORARILY
     Route: 065
  4. CEFUROX BASICS 500 MG TABLETTEN [Suspect]
     Active Substance: CEFUROXIME
     Indication: BRONCHITIS
     Dosage: 1 DF TOTAL
     Route: 048
     Dates: start: 20141103, end: 20141103
  5. GRIPOSTAT [Concomitant]
     Indication: BRONCHITIS
     Dosage: TEMPORARILY
     Route: 065

REACTIONS (10)
  - Nausea [Unknown]
  - Blood pressure decreased [Unknown]
  - Hypersensitivity [Unknown]
  - Cardiovascular disorder [Unknown]
  - Dizziness [Unknown]
  - Chills [Unknown]
  - Abdominal pain upper [Unknown]
  - Diarrhoea [Unknown]
  - Dysstasia [Unknown]
  - Vomiting [Unknown]

NARRATIVE: CASE EVENT DATE: 20141103
